FAERS Safety Report 4750897-0 (Version None)
Quarter: 2005Q3

REPORT INFORMATION
  Report Type: 
  Country: None (occurrence: None)
  Receive Date: 20050818
  Receipt Date: 20050805
  Transmission Date: 20060218
  Serious: Yes (Hospitalization)
  Sender: FDA-Public Use
  Company Number: 2005112140

PATIENT
  Age: 65 Year
  Sex: Female
  Weight: 72.5755 kg

DRUGS (14)
  1. NEURONTIN [Suspect]
     Indication: NEUROPATHY
     Dosage: 3200 MG (800 MG, 4 IN 1 D), ORAL
     Route: 048
     Dates: start: 20000101
  2. ELAVIL [Concomitant]
  3. GLUCOPHAGE [Concomitant]
  4. AMARYL [Concomitant]
  5. ACTOS [Concomitant]
  6. PAXIL [Concomitant]
  7. LIPITOR [Concomitant]
  8. FOLTX (CYANOCOBALAMIN, FOLIC ACID, PYRIDOXINE) [Concomitant]
  9. LOPRESSOR [Concomitant]
  10. NEXIUM [Concomitant]
  11. NIASPAN [Concomitant]
  12. CELEBREX [Concomitant]
  13. LISINOPRIL [Concomitant]
  14. LASIX [Concomitant]

REACTIONS (4)
  - BLOOD GLUCOSE INCREASED [None]
  - DIVERTICULITIS [None]
  - MYOCARDIAL INFARCTION [None]
  - WOUND [None]
